FAERS Safety Report 8362128 (Version 5)
Quarter: 2012Q4

REPORT INFORMATION
  Report Type: 
  Country: JP (occurrence: JP)
  Receive Date: 20120130
  Receipt Date: 20121119
  Transmission Date: 20130627
  Serious: Yes (Hospitalization, Other)
  Sender: FDA-Public Use
  Company Number: PHHY2012JP005969

PATIENT
  Age: 50 Year
  Sex: Male

DRUGS (2)
  1. CLOZAPINE [Suspect]
     Indication: SCHIZOPHRENIA
     Dosage: UNK UKN, UNK
     Route: 048
     Dates: start: 20111221
  2. MEROPEN [Suspect]
     Dosage: 1 g, UNK
     Route: 042

REACTIONS (15)
  - Eosinophil count increased [Not Recovered/Not Resolved]
  - Psychiatric symptom [Not Recovered/Not Resolved]
  - Delusion [Recovered/Resolved]
  - Kidney enlargement [Recovered/Resolved]
  - Benign prostatic hyperplasia [Recovered/Resolved]
  - Blood immunoglobulin E increased [Unknown]
  - Infection [Unknown]
  - Pericardial effusion [Recovered/Resolved]
  - Pleural effusion [Unknown]
  - Chills [Recovered/Resolved]
  - Pyrexia [Recovering/Resolving]
  - Hepatic function abnormal [Unknown]
  - Arthralgia [Recovered/Resolved]
  - Anxiety [Recovering/Resolving]
  - Headache [Unknown]
